FAERS Safety Report 7361089-3 (Version None)
Quarter: 2011Q1

REPORT INFORMATION
  Report Type: 
  Country: None (occurrence: None)
  Receive Date: 20110318
  Receipt Date: 20110314
  Transmission Date: 20110831
  Serious: Yes (Death, Disabling)
  Sender: FDA-Public Use
  Company Number: PHHO2011ES02485

PATIENT
  Sex: Male
  Weight: 102 kg

DRUGS (12)
  1. ATORVASTATIN CALCIUM [Concomitant]
  2. LANTUS [Concomitant]
     Indication: DIABETES MELLITUS
  3. TAMSULOSIN HCL [Concomitant]
     Indication: BENIGN PROSTATIC HYPERPLASIA
  4. OLMESARTAN MEDOXOMIL [Suspect]
     Indication: HYPERTENSION
  5. LOVAZA [Concomitant]
     Indication: HYPERLIPIDAEMIA
  6. HUMALOG [Concomitant]
     Indication: DIABETES MELLITUS
  7. ANTIBIOTICS [Concomitant]
  8. DILTIAZEM [Suspect]
     Indication: HYPERTENSION
  9. FRUSEMIDE [Suspect]
     Indication: HYPERTENSION
  10. CLOPIDOGREL [Concomitant]
  11. ALISKIREN [Suspect]
     Indication: CARDIOVASCULAR DISORDER
     Dosage: CODE NOT BROKEN
     Route: 048
     Dates: start: 20100527, end: 20110202
  12. A.A.S. [Concomitant]

REACTIONS (11)
  - HAEMATOCHEZIA [None]
  - CONCOMITANT DISEASE PROGRESSION [None]
  - PYREXIA [None]
  - NAUSEA [None]
  - DYSPNOEA [None]
  - MESENTERIC ARTERY STENOSIS [None]
  - GASTROINTESTINAL SOUNDS ABNORMAL [None]
  - ABDOMINAL PAIN [None]
  - ABDOMINAL DISTENSION [None]
  - ARTERIOSCLEROSIS [None]
  - INTESTINAL ISCHAEMIA [None]
